FAERS Safety Report 21764641 (Version 1)
Quarter: 2022Q4

REPORT INFORMATION
  Report Type: Spontaneous
  Country: IT (occurrence: IT)
  Receive Date: 20221222
  Receipt Date: 20221222
  Transmission Date: 20230112
  Serious: Yes (Hospitalization)
  Sender: FDA-Public Use
  Company Number: IT-AMGEN-ITASP2022217194

PATIENT
  Age: 48 Year
  Sex: Female

DRUGS (1)
  1. PROLIA [Suspect]
     Active Substance: DENOSUMAB
     Indication: Product used for unknown indication
     Dosage: UNK
     Route: 065
     Dates: start: 20221025

REACTIONS (2)
  - Hypophosphataemia [Recovered/Resolved]
  - Hyperparathyroidism primary [Recovered/Resolved]

NARRATIVE: CASE EVENT DATE: 20221122
